FAERS Safety Report 5793561-1 (Version None)
Quarter: 2008Q2

REPORT INFORMATION
  Report Type: 
  Country: None (occurrence: None)
  Receive Date: 20080627
  Receipt Date: 20080415
  Transmission Date: 20081010
  Serious: No
  Sender: FDA-Public Use
  Company Number: A0719151A

PATIENT
  Age: 60 Year
  Sex: Male

DRUGS (2)
  1. FORTAZ [Suspect]
     Indication: PNEUMONIA
     Dosage: 2G TWICE PER DAY
     Route: 042
     Dates: start: 20080325, end: 20080401
  2. AMIKACIN [Concomitant]
     Dosage: 1100MG PER DAY

REACTIONS (2)
  - DRUG INEFFECTIVE [None]
  - MEDICATION ERROR [None]
